FAERS Safety Report 10678186 (Version 1)
Quarter: 2014Q4

REPORT INFORMATION
  Report Type: Spontaneous
  Country: CA (occurrence: None)
  Receive Date: 20141223
  Receipt Date: 20141223
  Transmission Date: 20150529
  Serious: Yes (Other)
  Sender: FDA-Public Use
  Company Number: INT_00579_2014

PATIENT

DRUGS (3)
  1. CISPLATIN (CISPLATIN) (HQ SPECIALTY) [Suspect]
     Active Substance: CISPLATIN
     Indication: CERVIX CARCINOMA
     Dosage: DF.
  2. SORAFENIB [Suspect]
     Active Substance: SORAFENIB
     Indication: CERVIX CARCINOMA
  3. RADIATION THERAPY [Suspect]
     Active Substance: RADIATION THERAPY
     Indication: CERVIX CARCINOMA
     Dosage: DF

REACTIONS (2)
  - Rectal haemorrhage [None]
  - Toxicity to various agents [None]
